FAERS Safety Report 17530495 (Version 2)
Quarter: 2020Q2

REPORT INFORMATION
  Report Type: Spontaneous
  Country: IT (occurrence: IT)
  Receive Date: 20200311
  Receipt Date: 20200515
  Transmission Date: 20200713
  Serious: Yes (Hospitalization, Other)
  Sender: FDA-Public Use
  Company Number: IT-ELI_LILLY_AND_COMPANY-IT202003000309

PATIENT
  Age: 59 Year
  Sex: Female
  Weight: 82 kg

DRUGS (9)
  1. VERZENIO [Suspect]
     Active Substance: ABEMACICLIB
     Indication: BREAST CANCER METASTATIC
     Dosage: 150 MG, BID
     Route: 065
     Dates: start: 20200214, end: 20200415
  2. FUROSEMIDE. [Concomitant]
     Active Substance: FUROSEMIDE
     Dosage: 25 MG, EACH MORNING
     Route: 065
  3. CHOLECALCIFEROL [Concomitant]
     Active Substance: CHOLECALCIFEROL
     Dosage: 30 DOSAGE FORM, WEEKLY (1/W)
     Route: 065
  4. ANASTROZOL [Concomitant]
     Active Substance: ANASTROZOLE
     Indication: BREAST CANCER METASTATIC
     Dosage: UNK UNK, UNKNOWN
     Route: 065
     Dates: start: 201704
  5. VALSARTAN. [Concomitant]
     Active Substance: VALSARTAN
     Dosage: 240 MG, EACH MORNING
     Route: 065
  6. EUTIROX [Concomitant]
     Active Substance: LEVOTHYROXINE SODIUM
     Dosage: 125 UG, EACH MORNING
     Route: 065
  7. ESOMEPRAZOLE. [Concomitant]
     Active Substance: ESOMEPRAZOLE MAGNESIUM
     Dosage: 40 MG, EACH MORNING
     Route: 065
  8. FULVESTRANT. [Concomitant]
     Active Substance: FULVESTRANT
     Indication: BREAST CANCER METASTATIC
     Dosage: UNK UNK, UNKNOWN
     Route: 065
  9. VALSARTAN. [Concomitant]
     Active Substance: VALSARTAN
     Dosage: 160 MG, EACH EVENING
     Route: 065

REACTIONS (5)
  - Haematuria [Recovered/Resolved]
  - Malignant neoplasm progression [Unknown]
  - Varicose vein [Unknown]
  - Blood creatinine increased [Unknown]
  - Thrombophlebitis superficial [Recovering/Resolving]

NARRATIVE: CASE EVENT DATE: 20200227
